FAERS Safety Report 24875008 (Version 2)
Quarter: 2025Q1

REPORT INFORMATION
  Report Type: Report from Study
  Country: US (occurrence: US)
  Receive Date: 20250122
  Receipt Date: 20250127
  Transmission Date: 20250408
  Serious: Yes (Other)
  Sender: REGENERON
  Company Number: US-REGENERON PHARMACEUTICALS, INC.-2025-018537

PATIENT
  Sex: Male

DRUGS (1)
  1. CEMIPLIMAB [Suspect]
     Active Substance: CEMIPLIMAB
     Indication: Squamous cell carcinoma of skin
     Dosage: 350 MG, Q3W
     Route: 042
     Dates: start: 20240219

REACTIONS (1)
  - Positron emission tomogram abnormal [Unknown]
